FAERS Safety Report 19751421 (Version 1)
Quarter: 2021Q3

REPORT INFORMATION
  Report Type: Spontaneous
  Country: GR (occurrence: GR)
  Receive Date: 20210827
  Receipt Date: 20210827
  Transmission Date: 20211014
  Serious: Yes (Disabling, Other)
  Sender: FDA-Public Use
  Company Number: GR-EMD SERONO-E2B_90084843

PATIENT
  Age: 12 Year
  Sex: Female
  Weight: 57 kg

DRUGS (4)
  1. SAIZEN [Suspect]
     Active Substance: SOMATROPIN
     Indication: HYPOPITUITARISM
     Dosage: S: 1.15 MG PER DAY IN ORDER TO ACHIEVE 8 MILLIGRAMS WEEKLY.
     Route: 058
     Dates: start: 20160101, end: 20210701
  2. T4 [Concomitant]
     Active Substance: LEVOTHYROXINE
     Indication: HYPOPITUITARISM
     Route: 048
     Dates: start: 20150401
  3. HYDROCORTISONE. [Concomitant]
     Active Substance: HYDROCORTISONE
     Indication: HYPOPITUITARISM
     Route: 048
     Dates: start: 20150401
  4. VITAMIN D2 [Concomitant]
     Active Substance: ERGOCALCIFEROL
     Indication: HYPOPITUITARISM
     Route: 048
     Dates: start: 20150401

REACTIONS (2)
  - Craniopharyngioma [Unknown]
  - Neoplasm progression [Unknown]

NARRATIVE: CASE EVENT DATE: 20210701
